FAERS Safety Report 4826340-X (Version None)
Quarter: 2005Q4

REPORT INFORMATION
  Report Type: 
  Country: None (occurrence: None)
  Receive Date: 20051111
  Receipt Date: 20051019
  Transmission Date: 20060501
  Serious: Yes (Hospitalization)
  Sender: FDA-Public Use
  Company Number: JP-ROCHE-421668

PATIENT
  Age: 72 Year
  Sex: Male
  Weight: 50.9 kg

DRUGS (10)
  1. PANALDINE [Suspect]
     Indication: THROMBOSIS PROPHYLAXIS
     Dosage: SECOND INDICATION: PERCUTANEOUS CORONARY INTERVENTION.
     Route: 048
     Dates: start: 20050728, end: 20050826
  2. ISOSORBIDE MONONITRATE [Concomitant]
     Indication: ANGINA PECTORIS
     Route: 048
     Dates: start: 20050722, end: 20050826
  3. ADALAT [Concomitant]
     Indication: HYPERTENSION
     Route: 048
     Dates: start: 20050722, end: 20050826
  4. ASPIRIN [Concomitant]
     Indication: ANGINA PECTORIS
     Route: 048
     Dates: start: 20050722, end: 20050913
  5. ACECOL [Concomitant]
     Indication: HYPERTENSION
     Route: 048
     Dates: start: 20050722, end: 20050826
  6. LIPITOR [Concomitant]
     Route: 048
     Dates: start: 20050722, end: 20050826
  7. SELOKEN [Concomitant]
     Indication: ANGINA PECTORIS
     Route: 048
     Dates: start: 20050726, end: 20050826
  8. BASEN [Concomitant]
     Indication: DIABETES MELLITUS
     Route: 048
     Dates: end: 20050903
  9. EUGLUCON [Concomitant]
     Indication: DIABETES MELLITUS
     Route: 048
     Dates: end: 20050903
  10. NOVOLIN [Concomitant]
     Indication: DIABETES MELLITUS
     Route: 065

REACTIONS (5)
  - ANOREXIA [None]
  - CHOLESTASIS [None]
  - HYPERBILIRUBINAEMIA [None]
  - MALAISE [None]
  - XANTHOPSIA [None]
